FAERS Safety Report 9219720 (Version 1)
Quarter: 2013Q2

REPORT INFORMATION
  Report Type: Spontaneous
  Country: US (occurrence: None)
  Receive Date: 20130408
  Receipt Date: 20130408
  Transmission Date: 20140414
  Serious: Yes (Hospitalization)
  Sender: FDA-Public Use
  Company Number: None

PATIENT
  Age: 18 Year
  Sex: Male
  Weight: 67.6 kg

DRUGS (2)
  1. PEGASPARGASE [Suspect]
     Dates: start: 20130303
  2. PREDNISONE [Suspect]
     Dosage: 2968 MG IN TOTAL. FOR THE DAY.
     Dates: start: 20130327

REACTIONS (12)
  - Bedridden [None]
  - Fall [None]
  - Pain [None]
  - Pancreatitis [None]
  - Pancreatitis acute [None]
  - Hepatic steatosis [None]
  - Pleural effusion [None]
  - Atelectasis [None]
  - Constipation [None]
  - Encephalopathy [None]
  - Aphasia [None]
  - Computerised tomogram abnormal [None]
